FAERS Safety Report 8515189-2 (Version None)
Quarter: 2012Q3

REPORT INFORMATION
  Report Type: 
  Country: None (occurrence: None)
  Receive Date: 20120717
  Receipt Date: 20120710
  Transmission Date: 20120928
  Serious: Yes (Hospitalization)
  Sender: FDA-Public Use
  Company Number: JP-GLAXOSMITHKLINE-B0809925A

PATIENT
  Sex: Male
  Weight: 46 kg

DRUGS (4)
  1. PRAVASTATIN [Concomitant]
     Route: 048
  2. VALTREX [Suspect]
     Indication: HERPES ZOSTER
     Dosage: 2000MG PER DAY
     Route: 048
     Dates: start: 20120617, end: 20120619
  3. LANSOPRAZOLE [Concomitant]
     Route: 048
  4. FUROSEMIDE [Concomitant]
     Route: 048

REACTIONS (7)
  - DECREASED APPETITE [None]
  - GAIT DISTURBANCE [None]
  - NAUSEA [None]
  - PYREXIA [None]
  - RASH [None]
  - OVERDOSE [None]
  - RENAL IMPAIRMENT [None]
